FAERS Safety Report 23495454 (Version 1)
Quarter: 2024Q1

REPORT INFORMATION
  Report Type: Report from Study
  Country: US (occurrence: None)
  Receive Date: 20240207
  Receipt Date: 20240207
  Transmission Date: 20240409
  Serious: Yes (Hospitalization)
  Sender: FDA-Public Use
  Company Number: 2024A024569

PATIENT
  Sex: Female

DRUGS (2)
  1. CALQUENCE [Suspect]
     Active Substance: ACALABRUTINIB
     Route: 048
  2. CALQUENCE [Suspect]
     Active Substance: ACALABRUTINIB
     Route: 048

REACTIONS (8)
  - Drug intolerance [Unknown]
  - Incorrect dose administered [Unknown]
  - Weight increased [Unknown]
  - Feeling abnormal [Unknown]
  - Laboratory test abnormal [Unknown]
  - Illness [Unknown]
  - Panic reaction [Unknown]
  - Confusional state [Unknown]
